FAERS Safety Report 26016485 (Version 2)
Quarter: 2025Q4

REPORT INFORMATION
  Report Type: Report from Study
  Country: US (occurrence: US)
  Receive Date: 20251110
  Receipt Date: 20251113
  Transmission Date: 20260119
  Serious: Yes (Death, Other)
  Sender: JOHNSON AND JOHNSON
  Company Number: US-JNJFOC-20251143777

PATIENT

DRUGS (2)
  1. TECLISTAMAB [Suspect]
     Active Substance: TECLISTAMAB
     Indication: Plasma cell myeloma refractory
     Route: 065
  2. TALQUETAMAB [Suspect]
     Active Substance: TALQUETAMAB
     Indication: Plasma cell myeloma refractory
     Route: 065

REACTIONS (9)
  - Pneumocystis jirovecii infection [Fatal]
  - Pneumonia [Fatal]
  - Respiratory syncytial virus infection [Fatal]
  - COVID-19 [Fatal]
  - Sepsis [Fatal]
  - Pneumococcal infection [Fatal]
  - Cytomegalovirus infection reactivation [Unknown]
  - Cytomegalovirus oesophagitis [Unknown]
  - Cytokine release syndrome [Unknown]
